FAERS Safety Report 13516824 (Version 1)
Quarter: 2017Q2

REPORT INFORMATION
  Report Type: Spontaneous
  Country: US (occurrence: US)
  Receive Date: 20170504
  Receipt Date: 20170504
  Transmission Date: 20170830
  Serious: Yes (Other)
  Sender: FDA-Public Use
  Company Number: None

PATIENT
  Age: 70 Year
  Sex: Male

DRUGS (10)
  1. AMLODIPINE [Concomitant]
     Active Substance: AMLODIPINE BESYLATE
  2. GABAPENTIN. [Concomitant]
     Active Substance: GABAPENTIN
  3. LISIONPRIL [Concomitant]
  4. CYCLOPHOSPHAMIDE 50MG [Suspect]
     Active Substance: CYCLOPHOSPHAMIDE
     Indication: PLASMA CELL MYELOMA
     Route: 048
     Dates: start: 20161219
  5. VITAMIN D3 [Concomitant]
     Active Substance: CHOLECALCIFEROL
  6. PULMONATE [Concomitant]
  7. SODIUM CHLOR [Concomitant]
  8. AQUADEKS [Concomitant]
     Active Substance: MINERALS\VITAMINS
  9. MULTI VITAMIN [Concomitant]
     Active Substance: VITAMINS
  10. CIPROFLOXACN [Concomitant]
     Active Substance: CIPROFLOXACIN

REACTIONS (1)
  - Limb injury [None]

NARRATIVE: CASE EVENT DATE: 201705
